FAERS Safety Report 15682414 (Version 1)
Quarter: 2018Q4

REPORT INFORMATION
  Report Type: Spontaneous
  Country: US (occurrence: US)
  Receive Date: 20181203
  Receipt Date: 20181203
  Transmission Date: 20190205
  Serious: Yes (Hospitalization)
  Sender: FDA-Public Use
  Company Number: US-OTSUKA-2018_024922

PATIENT
  Sex: Female

DRUGS (2)
  1. ABILIFY [Suspect]
     Active Substance: ARIPIPRAZOLE
     Indication: SCHIZOPHRENIA
  2. ABILIFY [Suspect]
     Active Substance: ARIPIPRAZOLE
     Indication: BIPOLAR DISORDER
     Dosage: UNK
     Route: 065
     Dates: start: 2016, end: 2017

REACTIONS (9)
  - Compulsive shopping [Recovered/Resolved]
  - Gambling disorder [Recovered/Resolved]
  - Mental disorder [Unknown]
  - Theft [Recovered/Resolved]
  - Obsessive-compulsive disorder [Unknown]
  - Economic problem [Unknown]
  - Tachyphrenia [Recovered/Resolved]
  - Condition aggravated [Recovered/Resolved]
  - Shoplifting [Recovered/Resolved]

NARRATIVE: CASE EVENT DATE: 2016
